FAERS Safety Report 9838008 (Version 1)
Quarter: 2013Q4

REPORT INFORMATION
  Report Type: Spontaneous
  Country: US (occurrence: None)
  Receive Date: 20131205
  Receipt Date: 20131205
  Transmission Date: 20140711
  Serious: No
  Sender: FDA-Public Use
  Company Number: 163-POMAL-13110089

PATIENT
  Age: 78 Year
  Sex: Male
  Weight: 62.14 kg

DRUGS (10)
  1. POMALYST (POMALIDOMIDE) (4 MILLIGRAM, CAPSULES) [Suspect]
     Indication: PLASMA CELL MYELOMA
     Dosage: 21 IN 21 D
     Route: 048
     Dates: start: 20131003
  2. CARDIZEM (DILTIAZEM HYDROCHLORIDE) [Concomitant]
  3. CELEXA (CITALOPRAM HYDROBROMIDE) [Concomitant]
  4. DECADRON (DEXAMETHASONE) [Concomitant]
  5. NEXIUM (ESOMEPRAZOLE) [Concomitant]
  6. ADVAIR (SERETIDE MITE) [Concomitant]
  7. OXYCODONE [Concomitant]
  8. POTASSIUM [Concomitant]
  9. COUMADIN (WARFARIN SODIUM) [Concomitant]
  10. HYDROCHLOROTHIAZIDE (HYDROCHLOROTHIAZIDE) [Concomitant]

REACTIONS (1)
  - Somnolence [None]
